FAERS Safety Report 7506726-5 (Version None)
Quarter: 2011Q2

REPORT INFORMATION
  Report Type: 
  Country: None (occurrence: None)
  Receive Date: 20110526
  Receipt Date: 20110523
  Transmission Date: 20111010
  Serious: Yes (Other)
  Sender: FDA-Public Use
  Company Number: TR-PFIZER INC-2011111497

PATIENT
  Age: 37 Year
  Sex: Male

DRUGS (2)
  1. PREGABALIN [Suspect]
     Dosage: 20 CAPSULES (EQUIVALENT TO 3000 MG)
  2. PREGABALIN [Suspect]
     Indication: ANXIETY
     Dosage: 300 MG/DAY

REACTIONS (3)
  - DRUG ABUSE [None]
  - ANXIETY [None]
  - EUPHORIC MOOD [None]
